FAERS Safety Report 10154441 (Version 1)
Quarter: 2014Q2

REPORT INFORMATION
  Report Type: Spontaneous
  Country: ES (occurrence: ES)
  Receive Date: 20140506
  Receipt Date: 20140506
  Transmission Date: 20141212
  Serious: Yes (Hospitalization)
  Sender: FDA-Public Use
  Company Number: ES-JNJFOC-20140501388

PATIENT
  Age: 77 Year
  Sex: Male
  Weight: 95.96 kg

DRUGS (20)
  1. XARELTO [Suspect]
     Indication: CEREBROVASCULAR ACCIDENT PROPHYLAXIS
     Route: 048
     Dates: start: 20121003
  2. XARELTO [Suspect]
     Indication: ATRIAL FIBRILLATION
     Route: 048
     Dates: start: 20121003
  3. PARACETAMOL [Concomitant]
     Route: 048
  4. TRINISPRAY [Concomitant]
     Route: 055
  5. ASTUDAL [Concomitant]
     Route: 048
  6. AMERIDE [Concomitant]
     Route: 048
  7. AVAMYS [Concomitant]
     Route: 055
  8. SEGURIL [Concomitant]
     Route: 048
  9. EMCONCOR COR [Concomitant]
     Route: 048
  10. RIFAXIMIN [Concomitant]
     Route: 048
  11. TRANXILIUM [Concomitant]
     Route: 048
  12. PERMIXON [Concomitant]
     Route: 048
  13. TRANGOREX [Concomitant]
     Route: 048
  14. ATORVASTATIN [Concomitant]
     Route: 048
  15. PANTECTA [Concomitant]
     Route: 048
  16. DONEKA [Concomitant]
     Route: 048
  17. ONBREZ [Concomitant]
     Route: 048
  18. ARCOXIA [Concomitant]
     Route: 065
  19. FERROGLYCINE SULFATE COMPLEX [Concomitant]
     Route: 048
  20. TRANSTEC [Concomitant]
     Route: 065

REACTIONS (1)
  - Anaemia [Unknown]
